FAERS Safety Report 20319392 (Version 1)
Quarter: 2022Q1

REPORT INFORMATION
  Report Type: Report from Study
  Country: US (occurrence: US)
  Receive Date: 20220110
  Receipt Date: 20220110
  Transmission Date: 20220423
  Serious: Yes (Hospitalization)
  Sender: FDA-Public Use
  Company Number: US-ABBVIE-22K-163-4225718-00

PATIENT
  Sex: Female

DRUGS (2)
  1. ORIAHNN [Suspect]
     Active Substance: ELAGOLIX SODIUM\ESTRADIOL\NORETHINDRONE
     Indication: Uterine leiomyoma
     Route: 048
     Dates: start: 202112
  2. ORIAHNN [Suspect]
     Active Substance: ELAGOLIX SODIUM\ESTRADIOL\NORETHINDRONE
     Indication: Uterine leiomyoma
     Route: 048
     Dates: start: 202112

REACTIONS (6)
  - COVID-19 [Recovering/Resolving]
  - Pneumonia [Recovering/Resolving]
  - Hypoxia [Recovering/Resolving]
  - Respiratory distress [Recovering/Resolving]
  - Menstrual disorder [Recovered/Resolved]
  - Hypophagia [Unknown]
